FAERS Safety Report 8194287-X (Version None)
Quarter: 2012Q1

REPORT INFORMATION
  Report Type: 
  Country: None (occurrence: None)
  Receive Date: 20120308
  Receipt Date: 20120216
  Transmission Date: 20120608
  Serious: Yes (Death, Other)
  Sender: FDA-Public Use
  Company Number: US-PFIZER INC-2008003015

PATIENT
  Age: 49 Year
  Sex: Male

DRUGS (9)
  1. TRAZODONE HCL [Suspect]
  2. SILDENAFIL [Suspect]
     Route: 048
  3. LAMOTRIGINE [Suspect]
  4. HYDROXYZINE HYDROCHLORIDE [Suspect]
  5. VENLAFAXINE HCL [Suspect]
  6. GABAPENTIN [Suspect]
  7. LISINOPRIL AND HYDROCHLOROTHIAZIDE [Suspect]
  8. LISINOPRIL [Suspect]
  9. FUROSEMIDE [Suspect]

REACTIONS (4)
  - RESPIRATORY ARREST [None]
  - INTENTIONAL OVERDOSE [None]
  - COMPLETED SUICIDE [None]
  - CARDIAC ARREST [None]
